FAERS Safety Report 9997631 (Version 2)
Quarter: 2014Q1

REPORT INFORMATION
  Report Type: Report from Study
  Country: ES (occurrence: ES)
  Receive Date: 20140311
  Receipt Date: 20140311
  Transmission Date: 20141002
  Serious: Yes (Hospitalization)
  Sender: FDA-Public Use
  Company Number: ES-JNJFOC-20130620734

PATIENT
  Age: 76 Year
  Sex: Male
  Weight: 59.4 kg

DRUGS (7)
  1. IBRUTINIB [Suspect]
     Indication: CHRONIC LYMPHOCYTIC LEUKAEMIA
     Route: 048
     Dates: start: 20130604, end: 20130623
  2. IBRUTINIB [Suspect]
     Indication: CHRONIC LYMPHOCYTIC LEUKAEMIA
     Route: 048
     Dates: start: 20130730, end: 20130730
  3. ALLOPURINOL [Concomitant]
     Indication: BLOOD URIC ACID INCREASED
     Dates: start: 201306, end: 201306
  4. PREDNISONE [Concomitant]
     Indication: RASH
     Route: 042
     Dates: start: 20130623
  5. ACICLOVIR [Concomitant]
     Indication: RASH
     Route: 042
     Dates: start: 20130623
  6. ORAL STEROIDS [Concomitant]
     Indication: RASH
     Route: 048
     Dates: start: 20130623, end: 20130711
  7. TOPICAL STEROID [Concomitant]
     Indication: RASH

REACTIONS (1)
  - Rash macular [Recovered/Resolved]
